FAERS Safety Report 19804102 (Version 1)
Quarter: 2021Q3

REPORT INFORMATION
  Report Type: Spontaneous
  Country: US (occurrence: US)
  Receive Date: 20210908
  Receipt Date: 20210908
  Transmission Date: 20211014
  Serious: No
  Sender: FDA-Public Use
  Company Number: US-PFIZER INC-2021239480

PATIENT
  Age: 68 Year
  Sex: Female

DRUGS (1)
  1. EUCRISA [Suspect]
     Active Substance: CRISABOROLE
     Indication: ECZEMA EYELIDS
     Dosage: NIGHTLY/ APPLY DAILY TO AFFECTED AREA ON FACE
     Route: 061

REACTIONS (5)
  - Ocular discomfort [Unknown]
  - Eye swelling [Unknown]
  - Product administered at inappropriate site [Unknown]
  - Laryngeal pain [Unknown]
  - Eye pruritus [Unknown]
